FAERS Safety Report 5360680-3 (Version None)
Quarter: 2007Q2

REPORT INFORMATION
  Report Type: 
  Country: None (occurrence: None)
  Receive Date: 20070618
  Receipt Date: 20070608
  Transmission Date: 20071010
  Serious: Yes (Hospitalization, Disabling)
  Sender: FDA-Public Use
  Company Number: GB-ROCHE-499786

PATIENT
  Age: 62 Year
  Sex: Male
  Weight: 60 kg

DRUGS (5)
  1. XELODA [Suspect]
     Dosage: FREQUENCY WAS REPORTED AS 3/52.
     Route: 048
     Dates: start: 20060922, end: 20061208
  2. CISPLATIN [Concomitant]
     Route: 042
     Dates: start: 20060922, end: 20061222
  3. EPIRUBICIN [Concomitant]
     Route: 042
     Dates: start: 20060922, end: 20061222
  4. KYTRIL [Concomitant]
     Indication: ANTIEMETIC SUPPORTIVE CARE
     Route: 048
  5. KYTRIL [Concomitant]
     Route: 042

REACTIONS (3)
  - ILIAC ARTERY EMBOLISM [None]
  - INTERMITTENT CLAUDICATION [None]
  - VASOSPASM [None]
